FAERS Safety Report 10222049 (Version 2)
Quarter: 2014Q2

REPORT INFORMATION
  Report Type: Spontaneous
  Country: US (occurrence: US)
  Receive Date: 20140606
  Receipt Date: 20140606
  Transmission Date: 20141212
  Serious: No
  Sender: FDA-Public Use
  Company Number: US-BIOMARINAP-US-2014-102602

PATIENT
  Age: 21 Year
  Sex: Male
  Weight: 20.41 kg

DRUGS (1)
  1. NAGLAZYME [Suspect]
     Indication: MUCOPOLYSACCHARIDOSIS VI
     Dosage: 20 MG, QW
     Route: 041
     Dates: start: 201211

REACTIONS (2)
  - Burning sensation [Recovered/Resolved]
  - Pruritus generalised [Recovered/Resolved]
